FAERS Safety Report 6940403-4 (Version None)
Quarter: 2010Q3

REPORT INFORMATION
  Report Type: 
  Country: None (occurrence: None)
  Receive Date: 20100820
  Receipt Date: 20100804
  Transmission Date: 20110219
  Serious: Yes (Hospitalization)
  Sender: FDA-Public Use
  Company Number: 2010002936

PATIENT
  Age: 85 Year
  Sex: Male
  Weight: 62.1428 kg

DRUGS (5)
  1. ERLOTINIB HYDROCHLORIDE [Suspect]
     Indication: NON-SMALL CELL LUNG CANCER
     Dosage: (150 MG, QD), ORAL
     Route: 048
     Dates: start: 20100528, end: 20100718
  2. PAZOPANIB/ PLACEBO [Suspect]
     Indication: NON-SMALL CELL LUNG CANCER
     Dosage: (600 MG, QD), ORAL
     Route: 048
     Dates: start: 20100528, end: 20100718
  3. ASPIRIN [Concomitant]
  4. FISH OIL (FISH OIL) [Concomitant]
  5. MULTIVITAMIN [Concomitant]

REACTIONS (2)
  - ATRIAL FIBRILLATION [None]
  - FALL [None]
